FAERS Safety Report 10581280 (Version 1)
Quarter: 2014Q4

REPORT INFORMATION
  Report Type: Spontaneous
  Country: PH (occurrence: PH)
  Receive Date: 20141113
  Receipt Date: 20141113
  Transmission Date: 20150529
  Serious: Yes (Death)
  Sender: FDA-Public Use
  Company Number: PH-009507513-1411PHL005145

PATIENT
  Age: 79 Year
  Sex: Female

DRUGS (1)
  1. JANUMET [Suspect]
     Active Substance: METFORMIN HYDROCHLORIDE\SITAGLIPTIN PHOSPHATE
     Indication: DIABETES MELLITUS
     Dosage: ONE 50/500MG TABLET TWICE DAILY (100/1000MG DAILY)
     Route: 048
     Dates: start: 2013

REACTIONS (1)
  - Diabetic complication [Fatal]
